FAERS Safety Report 9311109 (Version 9)
Quarter: 2014Q4

REPORT INFORMATION
  Report Type: Spontaneous
  Country: US (occurrence: US)
  Receive Date: 20130528
  Receipt Date: 20141202
  Transmission Date: 20150529
  Serious: Yes (Hospitalization, Other)
  Sender: FDA-Public Use
  Company Number: US-PFIZER INC-2013159483

PATIENT
  Age: 16 Year
  Sex: Male
  Weight: 62 kg

DRUGS (2)
  1. ADVIL [Suspect]
     Active Substance: IBUPROFEN
     Dosage: UNK, AS NEEDED
     Route: 048
     Dates: start: 20100503
  2. CLEOCIN [Concomitant]
     Active Substance: CLINDAMYCIN PHOSPHATE
     Dosage: UNK
     Route: 061

REACTIONS (6)
  - Toxic epidermal necrolysis [Not Recovered/Not Resolved]
  - Entropion [Unknown]
  - Blindness unilateral [Unknown]
  - Stevens-Johnson syndrome [Not Recovered/Not Resolved]
  - Dry eye [Not Recovered/Not Resolved]
  - Trichiasis [Not Recovered/Not Resolved]

NARRATIVE: CASE EVENT DATE: 20100624
